FAERS Safety Report 5135358-1 (Version None)
Quarter: 2006Q4

REPORT INFORMATION
  Report Type: 
  Country: None (occurrence: None)
  Receive Date: 20061026
  Receipt Date: 20060606
  Transmission Date: 20070319
  Serious: No
  Sender: FDA-Public Use
  Company Number: US-GLAXOSMITHKLINE-A0608055A

PATIENT
  Age: 37 Year
  Sex: Female

DRUGS (5)
  1. IMITREX [Suspect]
     Indication: MIGRAINE
     Dosage: 1PUFF AS REQUIRED
     Route: 045
     Dates: start: 20050101, end: 20050101
  2. IMITREX [Suspect]
     Route: 042
     Dates: start: 20000101, end: 20000101
  3. LEXAPRO [Concomitant]
  4. MOTRIN [Concomitant]
  5. ADVIL [Concomitant]

REACTIONS (3)
  - DRUG INEFFECTIVE [None]
  - INJECTION SITE PAIN [None]
  - NAUSEA [None]
